FAERS Safety Report 8116769-9 (Version None)
Quarter: 2012Q1

REPORT INFORMATION
  Report Type: 
  Country: None (occurrence: None)
  Receive Date: 20120206
  Receipt Date: 20120131
  Transmission Date: 20120608
  Serious: Yes (Hospitalization)
  Sender: FDA-Public Use
  Company Number: JP-AMGEN-JPNSP2012006181

PATIENT
  Age: 73 Year
  Sex: Female

DRUGS (3)
  1. ROMIPLATE [Suspect]
     Indication: IDIOPATHIC THROMBOCYTOPENIC PURPURA
     Dosage: 1 MUG/KG, QWK
     Route: 058
     Dates: start: 20111215
  2. CEPHARANTHINE [Concomitant]
     Dosage: UNK
     Dates: start: 20111220
  3. ROMIPLATE [Suspect]
     Route: 058
     Dates: start: 20120126

REACTIONS (3)
  - ANTIBODY TEST [None]
  - PLATELET COUNT DECREASED [None]
  - THERAPEUTIC RESPONSE DECREASED [None]
